FAERS Safety Report 7956619-4 (Version None)
Quarter: 2011Q4

REPORT INFORMATION
  Report Type: 
  Country: None (occurrence: None)
  Receive Date: 20111205
  Receipt Date: 20111130
  Transmission Date: 20120403
  Serious: No
  Sender: FDA-Public Use
  Company Number: PHEH2011US010557

PATIENT
  Sex: Female
  Weight: 58.9 kg

DRUGS (5)
  1. LIPITOR [Concomitant]
  2. TASIGNA [Suspect]
     Indication: CHRONIC MYELOID LEUKAEMIA
     Dosage: 300 MG, BID
     Route: 048
     Dates: start: 20110801
  3. FISH OIL [Concomitant]
  4. ASPIRIN [Concomitant]
  5. BENADRYL [Concomitant]

REACTIONS (2)
  - RASH GENERALISED [None]
  - DRY SKIN [None]
